FAERS Safety Report 23479648 (Version 1)
Quarter: 2024Q1

REPORT INFORMATION
  Report Type: Spontaneous
  Country: US (occurrence: US)
  Receive Date: 20240205
  Receipt Date: 20240205
  Transmission Date: 20240409
  Serious: No
  Sender: FDA-Public Use
  Company Number: US-UCBSA-2023008986

PATIENT
  Age: 5 Day
  Sex: Female

DRUGS (4)
  1. KEPPRA [Suspect]
     Active Substance: LEVETIRACETAM
     Indication: Seizure
     Dosage: UNK
  2. AMPICILLIN [Concomitant]
     Active Substance: AMPICILLIN
     Indication: Product used for unknown indication
     Dosage: UNK
  3. CEFOTAXIME [Concomitant]
     Active Substance: CEFOTAXIME SODIUM
     Indication: Product used for unknown indication
     Dosage: UNK
  4. ACYCLOVIR [Concomitant]
     Active Substance: ACYCLOVIR
     Indication: Product used for unknown indication
     Dosage: UNK

REACTIONS (1)
  - No adverse event [Unknown]
